FAERS Safety Report 6152327-3 (Version None)
Quarter: 2009Q2

REPORT INFORMATION
  Report Type: 
  Country: None (occurrence: None)
  Receive Date: 20090413
  Receipt Date: 20070813
  Transmission Date: 20091009
  Serious: Yes (Hospitalization, Other)
  Sender: FDA-Public Use
  Company Number: US-ASTRAZENECA-2007UW15778

PATIENT
  Age: 9367 Day
  Sex: Female
  Weight: 95.3 kg

DRUGS (29)
  1. SEROQUEL [Suspect]
     Indication: SCHIZOPHRENIA
     Dosage: 200 MG - 600 MG
     Route: 048
     Dates: start: 20000801, end: 20060501
  2. SEROQUEL [Suspect]
     Indication: DEPRESSION
     Dosage: 200 MG - 600 MG
     Route: 048
     Dates: start: 20000801, end: 20060501
  3. SEROQUEL [Suspect]
     Dosage: 100-800 MG
     Route: 048
  4. SEROQUEL [Suspect]
     Dosage: 100-800 MG
     Route: 048
  5. RISPERDAL [Concomitant]
     Dates: start: 19990630, end: 19990727
  6. ZYPREXA [Concomitant]
     Dates: start: 20000829, end: 20020703
  7. LEXAPRO [Concomitant]
  8. ADVAIR HFA [Concomitant]
  9. BENADRYL [Concomitant]
  10. TYLENOL [Concomitant]
  11. ACIPHEX [Concomitant]
  12. LIMBITROL [Concomitant]
  13. ATIVAN [Concomitant]
  14. DEPAKOTE [Concomitant]
  15. TOPAMAX [Concomitant]
  16. ARTHROTEC [Concomitant]
  17. DITROPAN [Concomitant]
  18. COMBIVENT [Concomitant]
  19. PROMETHAZINE [Concomitant]
  20. PERCOCET [Concomitant]
  21. COGENTIN [Concomitant]
  22. GEODON [Concomitant]
  23. COUMADIN [Concomitant]
  24. METOCLOPRAMIDE [Concomitant]
  25. DARBEPOETIN ALFA [Concomitant]
  26. OXYBUTYNIN CHLORIDE [Concomitant]
  27. METFORMIN [Concomitant]
  28. LITHIUM CARBONATE [Concomitant]
     Dates: start: 20060908
  29. CATAPRES [Concomitant]

REACTIONS (19)
  - ABDOMINAL PAIN [None]
  - ABDOMINAL PAIN UPPER [None]
  - ACUTE PSYCHOSIS [None]
  - BACTERAEMIA [None]
  - CHRONIC OBSTRUCTIVE PULMONARY DISEASE [None]
  - DIARRHOEA [None]
  - GASTROOESOPHAGEAL REFLUX DISEASE [None]
  - HOMICIDAL IDEATION [None]
  - HYPOKALAEMIA [None]
  - MENTAL DISORDER [None]
  - NUTRITIONAL CONDITION ABNORMAL [None]
  - PANCREATIC NEOPLASM [None]
  - PANCREATITIS ACUTE [None]
  - PELVIC PAIN [None]
  - PSYCHOTIC DISORDER [None]
  - STAPHYLOCOCCAL INFECTION [None]
  - STRESS POLYCYTHAEMIA [None]
  - TOBACCO ABUSE [None]
  - VENOUS THROMBOSIS [None]
